FAERS Safety Report 9159911 (Version 1)
Quarter: 2013Q1

REPORT INFORMATION
  Report Type: Spontaneous
  Country: US (occurrence: None)
  Receive Date: 20130219
  Receipt Date: 20130219
  Transmission Date: 20140127
  Serious: Yes (Life-Threatening, Hospitalization)
  Sender: FDA-Public Use
  Company Number: PR-AE13-000102

PATIENT
  Age: 37 Year
  Sex: Female

DRUGS (2)
  1. GOODYS [Suspect]
     Indication: MIGRAINE
     Dosage: 3-8 POWDERS
     Route: 048
     Dates: start: 2006, end: 200912
  2. LAMICTAL (LAMOTRIGINE) TABLET [Concomitant]

REACTIONS (2)
  - Pyloric stenosis [None]
  - Gastrointestinal haemorrhage [None]
